FAERS Safety Report 6527344-1 (Version None)
Quarter: 2010Q1

REPORT INFORMATION
  Report Type: 
  Country: None (occurrence: None)
  Receive Date: 20100104
  Receipt Date: 20100104
  Transmission Date: 20100710
  Serious: Yes (Other)
  Sender: FDA-Public Use
  Company Number: None

PATIENT
  Age: 78 Year
  Sex: Male
  Weight: 97.5234 kg

DRUGS (1)
  1. LEVAQUIN [Suspect]
     Indication: HAEMORRHAGE URINARY TRACT
     Dosage: 1 PER DAY URETHRAL
     Route: 066
     Dates: start: 20091130, end: 20091204

REACTIONS (7)
  - ARTHRALGIA [None]
  - BALANCE DISORDER [None]
  - GAIT DISTURBANCE [None]
  - JOINT SWELLING [None]
  - MUSCULOSKELETAL PAIN [None]
  - PAIN IN EXTREMITY [None]
  - TENDON RUPTURE [None]
